FAERS Safety Report 26148653 (Version 1)
Quarter: 2025Q4

REPORT INFORMATION
  Report Type: Spontaneous
  Country: AU (occurrence: AU)
  Receive Date: 20251212
  Receipt Date: 20251212
  Transmission Date: 20260117
  Serious: Yes (Other)
  Sender: LUPIN
  Company Number: AU-GENERIC HEALTH PTY. LTD.-2025-11168

PATIENT

DRUGS (2)
  1. CETIRIZINE HYDROCHLORIDE [Suspect]
     Active Substance: CETIRIZINE HYDROCHLORIDE
     Indication: Allergy prophylaxis
     Dosage: 10 MG
     Route: 065
  2. PREDNISOLONE [Suspect]
     Active Substance: PREDNISOLONE
     Indication: Allergy prophylaxis
     Dosage: UNK (50 MG 2 DAYS PRIOR TO PROCEDURE AND PREDNISOLONE 50 MG 1H PRIOR)
     Route: 065

REACTIONS (3)
  - Angioedema [Unknown]
  - Drug ineffective for unapproved indication [Unknown]
  - Off label use [Unknown]
